FAERS Safety Report 19405836 (Version 2)
Quarter: 2021Q3

REPORT INFORMATION
  Report Type: Spontaneous
  Country: NL (occurrence: NL)
  Receive Date: 20210611
  Receipt Date: 20210705
  Transmission Date: 20211014
  Serious: Yes (Life-Threatening, Hospitalization, Other)
  Sender: FDA-Public Use
  Company Number: AN-SA-2021SA181298

PATIENT
  Age: 48 Year
  Sex: Male

DRUGS (6)
  1. ISOVIST [Suspect]
     Active Substance: IOTROLAN
     Indication: LOCAL ANAESTHESIA
  2. MARCAINE [Suspect]
     Active Substance: BUPIVACAINE HYDROCHLORIDE
     Indication: NERVE BLOCK
     Dosage: 0.5 ML
  3. TRIAMCINOLONE ACETONIDE. [Suspect]
     Active Substance: TRIAMCINOLONE ACETONIDE
     Indication: NERVE BLOCK
     Dosage: 0.5 ML OF 2% TRIAMCINOLONE HEXACETONIDE AROUND THE C6 NERVE ROOT IN 1 MINUTE
  4. MARCAINE [Suspect]
     Active Substance: BUPIVACAINE HYDROCHLORIDE
     Indication: LOCAL ANAESTHESIA
  5. TRIAMCINOLONE ACETONIDE. [Suspect]
     Active Substance: TRIAMCINOLONE ACETONIDE
     Indication: LOCAL ANAESTHESIA
  6. ISOVIST [Suspect]
     Active Substance: IOTROLAN
     Indication: NERVE BLOCK
     Dosage: 0.2 ML

REACTIONS (12)
  - Anterior spinal artery syndrome [Not Recovered/Not Resolved]
  - Dyspnoea [Unknown]
  - Spinal anaesthesia [Not Recovered/Not Resolved]
  - Paralysis [Not Recovered/Not Resolved]
  - XIth nerve injury [Not Recovered/Not Resolved]
  - Spinal cord injury cervical [Not Recovered/Not Resolved]
  - Areflexia [Not Recovered/Not Resolved]
  - Diaphragmatic paralysis [Not Recovered/Not Resolved]
  - Sensory loss [Recovered/Resolved]
  - Spinal cord infarction [Not Recovered/Not Resolved]
  - Anaesthetic complication [Unknown]
  - Spinal cord oedema [Unknown]
